FAERS Safety Report 6597892-7 (Version None)
Quarter: 2010Q1

REPORT INFORMATION
  Report Type: 
  Country: None (occurrence: None)
  Receive Date: 20100223
  Receipt Date: 20091218
  Transmission Date: 20100710
  Serious: Yes (Other)
  Sender: FDA-Public Use
  Company Number: US-ALLERGAN-0917010US

PATIENT
  Age: 42 Year
  Sex: Female

DRUGS (1)
  1. BOTOX [Suspect]
     Indication: DYSTONIA
     Dosage: 360 UNITS, SINGLE
     Route: 030
     Dates: start: 20091114, end: 20091114

REACTIONS (2)
  - MUSCULAR WEAKNESS [None]
  - MYOPATHY [None]
